FAERS Safety Report 7958278-3 (Version None)
Quarter: 2011Q4

REPORT INFORMATION
  Report Type: 
  Country: None (occurrence: None)
  Receive Date: 20111205
  Receipt Date: 20041129
  Transmission Date: 20120403
  Serious: Yes (Other)
  Sender: FDA-Public Use
  Company Number: PHHY2004US005183

PATIENT
  Sex: Male

DRUGS (1)
  1. EXELON [Suspect]

REACTIONS (3)
  - VISUAL IMPAIRMENT [None]
  - EYE HAEMORRHAGE [None]
  - MACULAR DEGENERATION [None]
